FAERS Safety Report 4589151-9 (Version None)
Quarter: 2005Q1

REPORT INFORMATION
  Report Type: 
  Country: None (occurrence: None)
  Receive Date: 20050215
  Receipt Date: 20050215
  Transmission Date: 20050727
  Serious: Yes (Other)
  Sender: FDA-Public Use
  Company Number: None

PATIENT
  Sex: Male
  Weight: 63.5036 kg

DRUGS (1)
  1. EFFEXOR [Suspect]
     Dosage: 1 DAILY  ORAL
     Route: 048

REACTIONS (7)
  - AFFECTIVE DISORDER [None]
  - DRUG WITHDRAWAL SYNDROME [None]
  - ECZEMA [None]
  - HYPERHIDROSIS [None]
  - INSOMNIA [None]
  - RASH [None]
  - SUICIDAL IDEATION [None]
